FAERS Safety Report 9167467 (Version 1)
Quarter: 2013Q1

REPORT INFORMATION
  Report Type: Spontaneous
  Country: US (occurrence: None)
  Receive Date: 20130304
  Receipt Date: 20130304
  Transmission Date: 20140127
  Serious: Yes (Disabling, Other)
  Sender: FDA-Public Use
  Company Number: 2013P1002665

PATIENT
  Sex: Female

DRUGS (4)
  1. PROPRANOLOL [Suspect]
     Indication: DEFORMITY
  2. PROPRANOLOL [Suspect]
     Indication: GROWTH ACCELERATED
  3. UNSPECIFIED [Concomitant]
  4. CORTICOSTERIODS [Concomitant]

REACTIONS (1)
  - Hemiparesis [None]
